FAERS Safety Report 25378923 (Version 2)
Quarter: 2025Q2

REPORT INFORMATION
  Report Type: Report from Study
  Country: CA (occurrence: CA)
  Receive Date: 20250530
  Receipt Date: 20250620
  Transmission Date: 20250716
  Serious: Yes (Other)
  Sender: ALEXION PHARMACEUTICALS
  Company Number: CA-AstraZeneca-CH-00876758A

PATIENT
  Age: 44 Year

DRUGS (10)
  1. ULTOMIRIS [Suspect]
     Active Substance: RAVULIZUMAB-CWVZ
     Indication: Cryopyrin associated periodic syndrome
  2. ULTOMIRIS [Suspect]
     Active Substance: RAVULIZUMAB-CWVZ
  3. ULTOMIRIS [Suspect]
     Active Substance: RAVULIZUMAB-CWVZ
     Dosage: 3300 MILLIGRAM, Q8W
  4. ULTOMIRIS [Suspect]
     Active Substance: RAVULIZUMAB-CWVZ
  5. TINZAPARIN [Suspect]
     Active Substance: TINZAPARIN
     Dosage: 8000 UNITS, QHS
  6. PREDNISONE [Concomitant]
     Active Substance: PREDNISONE
     Dosage: 7.5 MILLIGRAM, QD
  7. HUMAN IMMUNOGLOBULIN G [Concomitant]
     Active Substance: HUMAN IMMUNOGLOBULIN G
     Route: 065
  8. PENICILLIN [Concomitant]
     Active Substance: PENICILLIN
     Indication: Prophylaxis
     Route: 065
  9. Mero [Concomitant]
     Route: 065
  10. VITAMIN K [Concomitant]
     Active Substance: PHYTONADIONE

REACTIONS (17)
  - Haematoma infection [Unknown]
  - Thrombosis [Unknown]
  - Thrombocytopenia [Unknown]
  - Cryopyrin associated periodic syndrome [Unknown]
  - Retroperitoneal haematoma [Unknown]
  - Pneumonia [Unknown]
  - Haptoglobin decreased [Unknown]
  - White blood cell count increased [Unknown]
  - Haemorrhage [Unknown]
  - Productive cough [Unknown]
  - Abdominal tenderness [Unknown]
  - Abscess [Unknown]
  - Blood urea increased [Unknown]
  - Haemoglobin decreased [Unknown]
  - Blood lactate dehydrogenase increased [Unknown]
  - Reticulocyte count increased [Unknown]
  - Blood creatinine increased [Unknown]
